FAERS Safety Report 9165802 (Version 3)
Quarter: 2013Q2

REPORT INFORMATION
  Report Type: Spontaneous
  Country: FR (occurrence: FR)
  Receive Date: 20130315
  Receipt Date: 20130419
  Transmission Date: 20140414
  Serious: Yes (Other)
  Sender: FDA-Public Use
  Company Number: FR-ABBOTT-13P-056-1061269-00

PATIENT
  Age: 58 Year
  Sex: Female
  Weight: 60 kg

DRUGS (3)
  1. HUMIRA [Suspect]
     Indication: PSORIATIC ARTHROPATHY
     Route: 058
     Dates: end: 201302
  2. HUMIRA [Suspect]
     Indication: RHEUMATOID ARTHRITIS
  3. SPECIAFOLDINE [Concomitant]

REACTIONS (1)
  - Deafness unilateral [Recovered/Resolved]
